FAERS Safety Report 7229113-6 (Version None)
Quarter: 2011Q1

REPORT INFORMATION
  Report Type: 
  Country: None (occurrence: None)
  Receive Date: 20110117
  Receipt Date: 20110110
  Transmission Date: 20110831
  Serious: Yes (Other)
  Sender: FDA-Public Use
  Company Number: US-JNJFOC-20100703978

PATIENT
  Sex: Female

DRUGS (2)
  1. LEVAQUIN [Suspect]
     Indication: PULMONARY CONGESTION
     Route: 048
  2. PREDNISONE [Suspect]
     Indication: PRODUCT USED FOR UNKNOWN INDICATION
     Route: 065

REACTIONS (6)
  - ROTATOR CUFF SYNDROME [None]
  - BURSITIS [None]
  - ERYTHEMA [None]
  - PAIN IN EXTREMITY [None]
  - BURNING SENSATION [None]
  - PERIARTHRITIS [None]
